FAERS Safety Report 5164228-8 (Version None)
Quarter: 2006Q4

REPORT INFORMATION
  Report Type: 
  Country: None (occurrence: None)
  Receive Date: 20060918
  Receipt Date: 20051228
  Transmission Date: 20070319
  Serious: Yes (Hospitalization)
  Sender: FDA-Public Use
  Company Number: US-JNJFOC-20051000570

PATIENT
  Age: 37 Year
  Sex: Female
  Weight: 151.955 kg

DRUGS (16)
  1. TOPAMAX [Suspect]
     Indication: BIPOLAR DISORDER
     Dosage: 300 MG,   IN 1 DAY, ORAL
     Route: 048
     Dates: start: 19990101
  2. TOPAMAX [Suspect]
     Indication: MIGRAINE PROPHYLAXIS
     Dosage: 300 MG,   IN 1 DAY, ORAL
     Route: 048
     Dates: start: 19990101
  3. NASONEX [Concomitant]
  4. ALBUTEROL [Concomitant]
  5. PULMICORT [Concomitant]
  6. VICODIN [Concomitant]
  7. TESSALON [Concomitant]
  8. ZYRTEC [Concomitant]
  9. PHENERGAN W/ CODEINE (PHENERGAN WITH CODEINE) [Concomitant]
  10. LEXAPRO (SSRI) [Concomitant]
  11. LAMICTAL [Concomitant]
  12. VERAPAMIL [Concomitant]
  13. NEXIUM [Concomitant]
  14. ANTIFUNGAL MEDICATION (ANTIFUNGALS) CREAM [Concomitant]
  15. XOPENEX [Concomitant]
  16. MORPHINE [Concomitant]

REACTIONS (1)
  - NEPHROLITHIASIS [None]
